FAERS Safety Report 9349642 (Version 2)
Quarter: 2013Q3

REPORT INFORMATION
  Report Type: Spontaneous
  Country: BE (occurrence: None)
  Receive Date: 20130611
  Receipt Date: 20130723
  Transmission Date: 20140515
  Serious: Yes (Disabling)
  Sender: FDA-Public Use
  Company Number: DSM-2013-00533

PATIENT
  Age: 71 Year
  Sex: Male

DRUGS (1)
  1. OLSAR [Suspect]
     Indication: HYPERTENSION
     Route: 048
     Dates: start: 2009, end: 2013

REACTIONS (2)
  - Cough [None]
  - Dyspnoea [None]
